FAERS Safety Report 6273544-8 (Version None)
Quarter: 2009Q3

REPORT INFORMATION
  Report Type: 
  Country: None (occurrence: None)
  Receive Date: 20090720
  Receipt Date: 20081003
  Transmission Date: 20100115
  Serious: No
  Sender: FDA-Public Use
  Company Number: US-B.I. PHARMACEUTICALS,INC./RIDGEFIELD-2008-BP-15369BP

PATIENT
  Age: 79 Year
  Sex: Female

DRUGS (2)
  1. CATAPRES [Suspect]
     Indication: HYPERTENSION
     Dosage: 0.2 MG
     Route: 048
     Dates: start: 20080901, end: 20081002
  2. DILANTIN [Concomitant]
     Indication: HEADACHE

REACTIONS (2)
  - MUSCLE SPASMS [None]
  - TACHYCARDIA [None]
